FAERS Safety Report 6314882-X (Version None)
Quarter: 2009Q3

REPORT INFORMATION
  Report Type: 
  Country: None (occurrence: None)
  Receive Date: 20090819
  Receipt Date: 20090812
  Transmission Date: 20100115
  Serious: Yes (Other)
  Sender: FDA-Public Use
  Company Number: US-BAYER-200912907BCC

PATIENT
  Age: 17 Year
  Sex: Female
  Weight: 59 kg

DRUGS (1)
  1. MIDOL [Suspect]
     Indication: DYSMENORRHOEA
     Dosage: TOTAL DAILY DOSE: 6 DF  UNIT DOSE: 1 DF
     Route: 048
     Dates: start: 20090810

REACTIONS (2)
  - DYSMENORRHOEA [None]
  - INFECTION [None]
